FAERS Safety Report 9201382 (Version 1)
Quarter: 2013Q2

REPORT INFORMATION
  Report Type: Report from Study
  Country: CA (occurrence: CA)
  Receive Date: 20130401
  Receipt Date: 20130401
  Transmission Date: 20140414
  Serious: Yes (Hospitalization, Other)
  Sender: FDA-Public Use
  Company Number: CA-JNJFOC-20130314939

PATIENT
  Age: 16 Year
  Sex: Male
  Weight: 81 kg

DRUGS (4)
  1. REMICADE [Suspect]
     Indication: CROHN^S DISEASE
     Dosage: 97 WEEKS
     Route: 042
  2. ANCEF [Suspect]
     Indication: GROIN ABSCESS
     Route: 065
     Dates: start: 201302
  3. FLAGYL [Suspect]
     Indication: GROIN ABSCESS
     Route: 065
     Dates: start: 201302
  4. KEFLEX [Suspect]
     Indication: GROIN ABSCESS
     Route: 065
     Dates: start: 201302

REACTIONS (3)
  - Crohn^s disease [Unknown]
  - Grand mal convulsion [Unknown]
  - Groin abscess [Unknown]
